FAERS Safety Report 19857195 (Version 3)
Quarter: 2021Q3

REPORT INFORMATION
  Report Type: Spontaneous
  Country: US (occurrence: US)
  Receive Date: 20210920
  Receipt Date: 20210929
  Transmission Date: 20211014
  Serious: No
  Sender: FDA-Public Use
  Company Number: NVSC2021US212155

PATIENT
  Age: 46 Year
  Sex: Female
  Weight: 67.59 kg

DRUGS (1)
  1. MAYZENT [Suspect]
     Active Substance: SIPONIMOD
     Indication: MULTIPLE SCLEROSIS
     Dosage: 2 MG, QD (30 DAYS) (VIA MOUTH)
     Route: 048
     Dates: start: 20210714

REACTIONS (4)
  - Hypertension [Unknown]
  - Blood triglycerides increased [Unknown]
  - Blood cholesterol increased [Unknown]
  - Anxiety [Unknown]

NARRATIVE: CASE EVENT DATE: 20210714
